FAERS Safety Report 8973680 (Version 1)
Quarter: 2012Q4

REPORT INFORMATION
  Report Type: 
  Country: US (occurrence: US)
  Receive Date: 20121218
  Receipt Date: 20121218
  Transmission Date: 20130627
  Serious: Yes (Disabling)
  Sender: FDA-Public Use
  Company Number: US-BRISTOL-MYERS SQUIBB COMPANY-16921066

PATIENT
  Sex: Female

DRUGS (3)
  1. ABILIFY [Suspect]
     Route: 048
  2. XANAX [Suspect]
  3. ZOLOFT [Suspect]

REACTIONS (7)
  - Asthenia [Unknown]
  - Insomnia [Unknown]
  - Decreased appetite [Unknown]
  - Vomiting [Unknown]
  - Headache [Unknown]
  - Depression [Unknown]
  - Nervousness [Unknown]
